FAERS Safety Report 4305199-3 (Version None)
Quarter: 2004Q1

REPORT INFORMATION
  Report Type: 
  Country: None (occurrence: None)
  Receive Date: 20040226
  Receipt Date: 20040213
  Transmission Date: 20041129
  Serious: Yes (Other)
  Sender: FDA-Public Use
  Company Number: GB-GLAXOSMITHKLINE-B0323932A

PATIENT
  Age: 68 Year
  Sex: Female

DRUGS (1)
  1. CIMETIDINE HCL [Suspect]

REACTIONS (1)
  - TRANSIENT ISCHAEMIC ATTACK [None]
